FAERS Safety Report 5599393-1 (Version None)
Quarter: 2008Q1

REPORT INFORMATION
  Report Type: 
  Country: None (occurrence: None)
  Receive Date: 20080122
  Receipt Date: 20080115
  Transmission Date: 20080703
  Serious: Yes (Death)
  Sender: FDA-Public Use
  Company Number: AU-PFIZER INC-2008005156

PATIENT
  Sex: Male

DRUGS (1)
  1. SUTENT [Suspect]

REACTIONS (1)
  - DEATH [None]
